FAERS Safety Report 4721058-6 (Version None)
Quarter: 2005Q3

REPORT INFORMATION
  Report Type: 
  Country: None (occurrence: None)
  Receive Date: 20050719
  Receipt Date: 20040928
  Transmission Date: 20060218
  Serious: Yes (Death)
  Sender: FDA-Public Use
  Company Number: 2004236420US

PATIENT
  Age: 76 Year
  Sex: Female

DRUGS (6)
  1. CELEBREX [Suspect]
     Indication: ARTHRITIS
     Dosage: SEE IMAGE
     Route: 048
     Dates: start: 20000922
  2. CELEBREX [Suspect]
     Indication: ARTHRITIS
     Dosage: SEE IMAGE
     Route: 048
     Dates: start: 20010212
  3. EVISTA [Concomitant]
  4. CAPTOPRIL [Concomitant]
  5. TIAZAC [Concomitant]
  6. RANITIDINE [Concomitant]

REACTIONS (1)
  - DEATH [None]
